FAERS Safety Report 22306846 (Version 1)
Quarter: 2023Q2

REPORT INFORMATION
  Report Type: Spontaneous
  Country: JP (occurrence: JP)
  Receive Date: 20230511
  Receipt Date: 20230511
  Transmission Date: 20230722
  Serious: Yes (Other)
  Sender: FDA-Public Use
  Company Number: JP-ASTELLAS-2023JP005339

PATIENT
  Age: 78 Year
  Sex: Male

DRUGS (4)
  1. XOSPATA [Interacting]
     Active Substance: GILTERITINIB
     Indication: Acute myeloid leukaemia recurrent
     Route: 048
     Dates: start: 20221117, end: 20230111
  2. XOSPATA [Interacting]
     Active Substance: GILTERITINIB
     Indication: Acute myeloid leukaemia refractory
     Route: 048
     Dates: start: 20230125, end: 20230419
  3. XOSPATA [Interacting]
     Active Substance: GILTERITINIB
     Route: 048
     Dates: start: 20230426
  4. GASTER [Concomitant]
     Active Substance: FAMOTIDINE
     Indication: Duodenal ulcer
     Dosage: UNK UNK, UNKNOWN FREQ.
     Route: 048

REACTIONS (1)
  - Duodenal ulcer [Recovered/Resolved]

NARRATIVE: CASE EVENT DATE: 20230419
